FAERS Safety Report 16369155 (Version 1)
Quarter: 2019Q2

REPORT INFORMATION
  Report Type: Spontaneous
  Country: US (occurrence: US)
  Receive Date: 20190529
  Receipt Date: 20190529
  Transmission Date: 20190711
  Serious: No
  Sender: FDA-Public Use
  Company Number: US-GALDERMA-US18016252

PATIENT
  Age: 56 Year
  Sex: Female

DRUGS (1)
  1. DIFFERIN GEL [Suspect]
     Active Substance: ADAPALENE
     Indication: PRODUCT USED FOR UNKNOWN INDICATION
     Dosage: 0.1%
     Route: 061

REACTIONS (7)
  - Rash papular [Recovered/Resolved]
  - Rash [Recovered/Resolved]
  - Scab [Recovered/Resolved]
  - Dry skin [Recovering/Resolving]
  - Erythema [Recovered/Resolved]
  - Sunburn [Recovered/Resolved]
  - Skin exfoliation [Recovering/Resolving]

NARRATIVE: CASE EVENT DATE: 20180619
